FAERS Safety Report 18184801 (Version 2)
Quarter: 2020Q3

REPORT INFORMATION
  Report Type: Report from Study
  Country: None (occurrence: US)
  Receive Date: 20200824
  Receipt Date: 20200905
  Transmission Date: 20201103
  Serious: Yes (Other)
  Sender: FDA-Public Use
  Company Number: US-ABBVIE-20K-163-3532997-00

PATIENT
  Age: 58 Year
  Sex: Female
  Weight: 98 kg

DRUGS (9)
  1. NORCO [Concomitant]
     Active Substance: ACETAMINOPHEN\HYDROCODONE BITARTRATE
     Indication: PAIN
  2. LASIX [Concomitant]
     Active Substance: FUROSEMIDE
     Indication: FLUID RETENTION
  3. LYRICA [Concomitant]
     Active Substance: PREGABALIN
     Indication: PAIN
  4. LEVOTHYROXINE. [Concomitant]
     Active Substance: LEVOTHYROXINE
     Indication: HYPOTHYROIDISM
  5. VENTOLIN [Concomitant]
     Active Substance: ALBUTEROL SULFATE
     Indication: ASTHMA
  6. VENCLEXTA [Suspect]
     Active Substance: VENETOCLAX
     Indication: CHRONIC LYMPHOCYTIC LEUKAEMIA
     Route: 048
     Dates: start: 20191023
  7. VENCLEXTA [Suspect]
     Active Substance: VENETOCLAX
     Indication: SKIN CANCER
  8. CELEXA [Concomitant]
     Active Substance: CITALOPRAM HYDROBROMIDE
     Indication: ANTIDEPRESSANT THERAPY
  9. PHENERGAN [Concomitant]
     Active Substance: PROMETHAZINE HYDROCHLORIDE
     Indication: NAUSEA

REACTIONS (5)
  - Anorectal operation [Not Recovered/Not Resolved]
  - Vomiting [Unknown]
  - Squamous cell carcinoma [Recovered/Resolved]
  - Vulval operation [Not Recovered/Not Resolved]
  - Abdominal discomfort [Unknown]

NARRATIVE: CASE EVENT DATE: 2020
